FAERS Safety Report 22191179 (Version 1)
Quarter: 2023Q2

REPORT INFORMATION
  Report Type: Spontaneous
  Country: US (occurrence: None)
  Receive Date: 20230407
  Receipt Date: 20230407
  Transmission Date: 20230722
  Serious: Yes (Other)
  Sender: FDA-Public Use
  Company Number: None

PATIENT
  Age: 5 Year
  Sex: Male
  Weight: 19.3 kg

DRUGS (1)
  1. GAMMAGARD LIQUID [Suspect]
     Active Substance: HUMAN IMMUNOGLOBULIN G
     Dosage: OTHER FREQUENCY : ONCE;?
     Route: 042
     Dates: start: 20230310, end: 20230311

REACTIONS (3)
  - Haemolysis [None]
  - Haemoglobin decreased [None]
  - Coombs indirect test positive [None]

NARRATIVE: CASE EVENT DATE: 20230314
